FAERS Safety Report 4879953-3 (Version None)
Quarter: 2006Q1

REPORT INFORMATION
  Report Type: 
  Country: None (occurrence: None)
  Receive Date: 20060113
  Receipt Date: 20051207
  Transmission Date: 20060701
  Serious: Yes (Hospitalization, Other)
  Sender: FDA-Public Use
  Company Number: US-MERCK-0512USA01390

PATIENT
  Age: 73 Year
  Sex: Male
  Weight: 96 kg

DRUGS (16)
  1. VIOXX [Suspect]
     Indication: ARTHRITIS
     Route: 048
  2. VIOXX [Suspect]
     Route: 048
     Dates: start: 20000112, end: 20041012
  3. VIOXX [Suspect]
     Route: 048
     Dates: start: 20000112, end: 20041012
  4. VIOXX [Suspect]
     Route: 048
     Dates: start: 20000112, end: 20041012
  5. VIOXX [Suspect]
     Route: 048
     Dates: start: 20000112, end: 20041012
  6. VIOXX [Suspect]
     Route: 048
     Dates: start: 20000112, end: 20041012
  7. VIOXX [Suspect]
     Route: 048
     Dates: start: 20000112, end: 20041012
  8. VIOXX [Suspect]
     Route: 065
  9. VIOXX [Suspect]
     Indication: SPONDYLITIS
     Route: 048
  10. VIOXX [Suspect]
     Route: 048
     Dates: start: 20000112, end: 20041012
  11. VIOXX [Suspect]
     Route: 048
     Dates: start: 20000112, end: 20041012
  12. VIOXX [Suspect]
     Route: 048
     Dates: start: 20000112, end: 20041012
  13. VIOXX [Suspect]
     Route: 048
     Dates: start: 20000112, end: 20041012
  14. VIOXX [Suspect]
     Route: 048
     Dates: start: 20000112, end: 20041012
  15. VIOXX [Suspect]
     Route: 048
     Dates: start: 20000112, end: 20041012
  16. VIOXX [Suspect]
     Route: 065

REACTIONS (47)
  - ABSCESS LIMB [None]
  - ANXIETY [None]
  - AORTIC VALVE INCOMPETENCE [None]
  - ARTHRALGIA [None]
  - ATRIAL TACHYCARDIA [None]
  - BACK PAIN [None]
  - BLOOD PRESSURE INADEQUATELY CONTROLLED [None]
  - CAROTID ARTERY DISEASE [None]
  - CAROTID ARTERY STENOSIS [None]
  - CAROTID SINUS SYNDROME [None]
  - CEREBROVASCULAR ACCIDENT [None]
  - CHEST PAIN [None]
  - CONTUSION [None]
  - CORONARY ARTERY DISEASE [None]
  - DEPRESSION [None]
  - DERMAL CYST [None]
  - DIABETES MELLITUS INADEQUATE CONTROL [None]
  - DIABETES MELLITUS NON-INSULIN-DEPENDENT [None]
  - DILATATION ATRIAL [None]
  - DILATATION VENTRICULAR [None]
  - DYSLIPIDAEMIA [None]
  - ENCEPHALOMALACIA [None]
  - FALL [None]
  - FEMORAL ARTERIAL STENOSIS [None]
  - GASTROOESOPHAGEAL REFLUX DISEASE [None]
  - HAEMORRHAGE INTRACRANIAL [None]
  - HYPERLIPIDAEMIA [None]
  - HYPERTENSION [None]
  - HYPOAESTHESIA [None]
  - ILIAC ARTERY STENOSIS [None]
  - INCREASED APPETITE [None]
  - INFECTION [None]
  - INSOMNIA [None]
  - INTERMITTENT CLAUDICATION [None]
  - MITRAL VALVE INCOMPETENCE [None]
  - MUSCLE SPASMS [None]
  - MUSCULOSKELETAL CHEST PAIN [None]
  - NECK PAIN [None]
  - NEOPLASM PROSTATE [None]
  - NOCTURIA [None]
  - OEDEMA PERIPHERAL [None]
  - PERIPHERAL VASCULAR DISORDER [None]
  - PHARYNGITIS [None]
  - POLLAKIURIA [None]
  - SICK SINUS SYNDROME [None]
  - TOE AMPUTATION [None]
  - TRANSIENT ISCHAEMIC ATTACK [None]
